FAERS Safety Report 8204434-9 (Version None)
Quarter: 2012Q1

REPORT INFORMATION
  Report Type: 
  Country: None (occurrence: None)
  Receive Date: 20120313
  Receipt Date: 20120309
  Transmission Date: 20120608
  Serious: Yes (Hospitalization, Other)
  Sender: FDA-Public Use
  Company Number: US-AMGEN-USASP2012015588

PATIENT
  Age: 73 Year
  Sex: Female

DRUGS (1)
  1. PROLIA [Suspect]
     Indication: OSTEOPOROSIS POSTMENOPAUSAL
     Dates: start: 20111108

REACTIONS (20)
  - IMPAIRED HEALING [None]
  - BACK PAIN [None]
  - ARTHRALGIA [None]
  - PRURITUS [None]
  - INSOMNIA [None]
  - ORAL DISORDER [None]
  - SWOLLEN TONGUE [None]
  - HYPOAESTHESIA ORAL [None]
  - PHARYNGEAL MASS [None]
  - AGEUSIA [None]
  - DYSGEUSIA [None]
  - BONE PAIN [None]
  - INFLUENZA LIKE ILLNESS [None]
  - KNEE ARTHROPLASTY [None]
  - DRUG HYPERSENSITIVITY [None]
  - FLUID INTAKE REDUCED [None]
  - SKIN MASS [None]
  - TONGUE DISORDER [None]
  - HYPOPHAGIA [None]
  - ASTHENIA [None]
